FAERS Safety Report 26183421 (Version 1)
Quarter: 2025Q4

REPORT INFORMATION
  Report Type: Spontaneous
  Country: EU (occurrence: EU)
  Receive Date: 20251221
  Receipt Date: 20251221
  Transmission Date: 20260118
  Serious: Yes (Hospitalization)
  Sender: CIPLA
  Company Number: EU-MINISAL02-1071511

PATIENT

DRUGS (5)
  1. RIVAROXABAN [Suspect]
     Active Substance: RIVAROXABAN
     Indication: Product used for unknown indication
     Dosage: 15 MILLIGRAM, QD, RIVAROXABAN EG 15MG (EVERY 24 HOURS), TABLET
     Route: 048
     Dates: start: 202503, end: 2025
  2. VORTIOXETINE DL-LACTATE [Suspect]
     Active Substance: VORTIOXETINE DL-LACTATE
     Indication: Product used for unknown indication
     Dosage: 5MG, (BRINTELLIX, COATED TABLET)
     Route: 048
  3. OLMESARTAN MEDOXOMIL [Concomitant]
     Active Substance: OLMESARTAN MEDOXOMIL
     Indication: Product used for unknown indication
     Dosage: 20 MILLIGRAM, QD, EVERY 24 HOURS, TABLET, OLMESARTAN M 20MG 28C, TABLET
     Route: 048
  4. FUROSEMIDE [Concomitant]
     Active Substance: FUROSEMIDE
     Indication: Product used for unknown indication
     Dosage: 25 MILLIGRAM, QD, EVERY 24 HOURS, TABLET, FUROSEMIDE 25MG 30CPR, TABLET
     Route: 048
  5. OMEPRAZOLE [Concomitant]
     Active Substance: OMEPRAZOLE
     Indication: Product used for unknown indication
     Dosage: 20 MILLIGRAM, QD, EVERY 24 HOURS, OMEPRAZOLO 20MG 28CPS, CAPSULE
     Route: 048

REACTIONS (1)
  - Anaemia [Unknown]

NARRATIVE: CASE EVENT DATE: 20250101
